FAERS Safety Report 9965923 (Version 1)
Quarter: 2014Q1

REPORT INFORMATION
  Report Type: Report from Study
  Country: US (occurrence: US)
  Receive Date: 20140305
  Receipt Date: 20140305
  Transmission Date: 20141002
  Serious: No
  Sender: FDA-Public Use
  Company Number: US-ABBVIE-13P-163-1124113-00

PATIENT
  Age: 32 Year
  Sex: Male

DRUGS (2)
  1. HUMIRA [Suspect]
     Indication: RHEUMATOID ARTHRITIS
     Dates: start: 201301, end: 201302
  2. HUMIRA [Suspect]
     Route: 058
     Dates: start: 201302, end: 201307

REACTIONS (8)
  - Inflammation [Unknown]
  - Dyspnoea [Not Recovered/Not Resolved]
  - Injection site reaction [Recovered/Resolved]
  - Joint stiffness [Not Recovered/Not Resolved]
  - Drug effect decreased [Unknown]
  - Drug dose omission [Unknown]
  - Pain [Unknown]
  - Drug ineffective [Unknown]
